FAERS Safety Report 14391092 (Version 5)
Quarter: 2018Q3

REPORT INFORMATION
  Report Type: Spontaneous
  Country: US (occurrence: US)
  Receive Date: 20180116
  Receipt Date: 20180801
  Transmission Date: 20181010
  Serious: No
  Sender: FDA-Public Use
  Company Number: US-PFIZER INC-2018018622

PATIENT
  Age: 71 Year
  Sex: Male
  Weight: 100 kg

DRUGS (2)
  1. SUTENT [Suspect]
     Active Substance: SUNITINIB MALATE
     Indication: RENAL CANCER
     Dosage: 37.5 MG, CYCLIC (1 PO QD X 2 WEEKS, 1 WEEK OFF)
     Route: 048
     Dates: start: 20160617
  2. SUTENT [Suspect]
     Active Substance: SUNITINIB MALATE
     Dosage: 37.5 MG, CYCLIC (DAILY X 2WEEKS ON 1 WEEK OFF)
     Route: 048
     Dates: start: 20160623

REACTIONS (10)
  - Erythema [Unknown]
  - Dizziness [Unknown]
  - Fatigue [Unknown]
  - Diarrhoea [Unknown]
  - Muscle spasms [Unknown]
  - Neuralgia [Unknown]
  - Palmar-plantar erythrodysaesthesia syndrome [Unknown]
  - Joint swelling [Unknown]
  - Eructation [Unknown]
  - Pain in extremity [Unknown]
